FAERS Safety Report 5838084-6 (Version None)
Quarter: 2008Q3

REPORT INFORMATION
  Report Type: 
  Country: None (occurrence: None)
  Receive Date: 20080808
  Receipt Date: 20080603
  Transmission Date: 20090109
  Serious: No
  Sender: FDA-Public Use
  Company Number: A0730879A

PATIENT
  Age: 60 Year
  Sex: Female

DRUGS (3)
  1. PAXIL [Suspect]
     Dosage: 25MG PER DAY
     Route: 048
     Dates: start: 20050101
  2. PAXIL CR [Suspect]
     Dosage: 12.5MG PER DAY
     Route: 048
     Dates: end: 20080530
  3. FLUID [Concomitant]
     Route: 048

REACTIONS (7)
  - ABNORMAL SENSATION IN EYE [None]
  - ANXIETY [None]
  - DRUG INEFFECTIVE [None]
  - EUPHORIC MOOD [None]
  - FLIGHT OF IDEAS [None]
  - INSOMNIA [None]
  - SENSORY DISTURBANCE [None]
